FAERS Safety Report 11211798 (Version 1)
Quarter: 2015Q2

REPORT INFORMATION
  Report Type: Spontaneous
  Country: US (occurrence: None)
  Receive Date: 20150619
  Receipt Date: 20150619
  Transmission Date: 20150821
  Serious: Yes (Hospitalization)
  Sender: FDA-Public Use
  Company Number: None

PATIENT
  Age: 85 Year
  Sex: Female
  Weight: 75.5 kg

DRUGS (16)
  1. VITAMIN D [Concomitant]
     Active Substance: CHOLECALCIFEROL
  2. ARICEPT [Concomitant]
     Active Substance: DONEPEZIL HYDROCHLORIDE
  3. CELEXA [Concomitant]
     Active Substance: CITALOPRAM HYDROBROMIDE
  4. NOVOLOG [Concomitant]
     Active Substance: INSULIN ASPART
  5. ASPIRIN. [Suspect]
     Active Substance: ASPIRIN
     Indication: HIP FRACTURE
     Dosage: 325MG DAILY PO?CHRONIC
     Route: 048
  6. MVI [Concomitant]
     Active Substance: VITAMINS
  7. JANUVIA [Concomitant]
     Active Substance: SITAGLIPTIN PHOSPHATE
  8. FLEXERIL [Concomitant]
     Active Substance: CYCLOBENZAPRINE HYDROCHLORIDE
  9. OSCAL [Concomitant]
     Active Substance: CALCIUM CARBONATE
  10. COUMADIN [Suspect]
     Active Substance: WARFARIN SODIUM
     Indication: HIP FRACTURE
     Dosage: 2.5MG DAILY PO?RECENT
     Route: 048
  11. ATORVASTATIN [Concomitant]
     Active Substance: ATORVASTATIN
  12. LEVEMIR [Concomitant]
     Active Substance: INSULIN DETEMIR
  13. ACTOS [Concomitant]
     Active Substance: PIOGLITAZONE HYDROCHLORIDE
  14. PRINIVIL [Concomitant]
     Active Substance: LISINOPRIL
  15. NAMENDA [Concomitant]
     Active Substance: MEMANTINE HYDROCHLORIDE
  16. OXYCODONE [Concomitant]
     Active Substance: OXYCODONE

REACTIONS (1)
  - Gastritis haemorrhagic [None]

NARRATIVE: CASE EVENT DATE: 20150216
